FAERS Safety Report 6849320-1 (Version None)
Quarter: 2010Q3

REPORT INFORMATION
  Report Type: 
  Country: None (occurrence: None)
  Receive Date: 20100716
  Receipt Date: 20070926
  Transmission Date: 20110219
  Serious: Yes (Other)
  Sender: FDA-Public Use
  Company Number: US-PFIZER INC-2007082309

PATIENT
  Sex: Female
  Weight: 68.181 kg

DRUGS (5)
  1. CHANTIX [Suspect]
     Indication: SMOKING CESSATION THERAPY
     Dates: start: 20070907
  2. HYOSCYAMINE [Interacting]
     Indication: IRRITABLE BOWEL SYNDROME
     Dosage: PRN
  3. LOPERAMIDE HYDROCHLORIDE [Concomitant]
  4. BENADRYL [Concomitant]
     Indication: SEASONAL ALLERGY
  5. ALEVE (CAPLET) [Concomitant]
     Indication: HEADACHE

REACTIONS (7)
  - DIZZINESS [None]
  - DRUG INTERACTION [None]
  - DYSPNOEA [None]
  - HEADACHE [None]
  - HEART RATE INCREASED [None]
  - NAUSEA [None]
  - SYNCOPE [None]
